FAERS Safety Report 24163465 (Version 1)
Quarter: 2024Q3

REPORT INFORMATION
  Report Type: Spontaneous
  Country: CN (occurrence: CN)
  Receive Date: 20240801
  Receipt Date: 20240801
  Transmission Date: 20241017
  Serious: Yes (Other)
  Sender: BAXTER
  Company Number: None

PATIENT
  Age: 21 Year
  Sex: Male
  Weight: 77 kg

DRUGS (7)
  1. MESNA [Suspect]
     Active Substance: MESNA
     Indication: Prophylaxis
     Dosage: UNK
     Route: 065
     Dates: start: 20240417
  2. CYCLOPHOSPHAMIDE [Suspect]
     Active Substance: CYCLOPHOSPHAMIDE
     Indication: Acute promyelocytic leukaemia
     Dosage: 4.6 G, ONE TIME IN ONE DAY, AS A PART OF BUCY CONDITIONING REGIMEN
     Route: 041
     Dates: start: 20240417, end: 20240419
  3. CYCLOPHOSPHAMIDE [Suspect]
     Active Substance: CYCLOPHOSPHAMIDE
     Indication: Chemotherapy
  4. BUSULFAN [Suspect]
     Active Substance: BUSULFAN
     Indication: Acute promyelocytic leukaemia
     Dosage: 60 MG, FOUR TIMES IN ONE DAY, AS A PART OF BUCY CONDITIONING REGIMEN
     Route: 041
     Dates: start: 20240419, end: 20240423
  5. BUSULFAN [Suspect]
     Active Substance: BUSULFAN
     Indication: Chemotherapy
  6. URSODIOL [Suspect]
     Active Substance: URSODIOL
     Indication: Prophylaxis
     Dosage: UNK
     Route: 065
     Dates: start: 20240417
  7. ALPROSTADIL [Suspect]
     Active Substance: ALPROSTADIL
     Indication: Prophylaxis
     Dosage: UNK
     Route: 065
     Dates: start: 20240417

REACTIONS (1)
  - Myelosuppression [Recovering/Resolving]

NARRATIVE: CASE EVENT DATE: 20240505
